FAERS Safety Report 24227061 (Version 2)
Quarter: 2024Q3

REPORT INFORMATION
  Report Type: Spontaneous
  Country: US (occurrence: US)
  Receive Date: 20240820
  Receipt Date: 20240919
  Transmission Date: 20241017
  Serious: No
  Sender: PFIZER
  Company Number: US-PFIZER INC-PV202400059729

PATIENT
  Age: 9 Year
  Sex: Female

DRUGS (1)
  1. GENOTROPIN [Suspect]
     Active Substance: SOMATROPIN
     Indication: Turner^s syndrome
     Dosage: 1 MG, DAILY (DAILY DOSE 1.0 MG/DAY 7 DAYS/WK)

REACTIONS (3)
  - Device physical property issue [Unknown]
  - Device leakage [Unknown]
  - Device breakage [Unknown]
